FAERS Safety Report 19301588 (Version 1)
Quarter: 2021Q2

REPORT INFORMATION
  Report Type: Spontaneous
  Country: US (occurrence: US)
  Receive Date: 20210524
  Receipt Date: 20210524
  Transmission Date: 20210717
  Serious: Yes (Other)
  Sender: FDA-Public Use
  Company Number: US-PURDUE-USA-2020-0171328

PATIENT
  Sex: Male

DRUGS (4)
  1. OXYCODONE HCL TABLETS (RHODES 91?490) [Suspect]
     Active Substance: OXYCODONE HYDROCHLORIDE
     Indication: PRODUCT USED FOR UNKNOWN INDICATION
     Dosage: UNK
     Route: 048
  2. OXYCONTIN [Suspect]
     Active Substance: OXYCODONE HYDROCHLORIDE
     Indication: PRODUCT USED FOR UNKNOWN INDICATION
     Dosage: UNK
     Route: 048
  3. HEROIN [Suspect]
     Active Substance: DIAMORPHINE
     Indication: PRODUCT USED FOR UNKNOWN INDICATION
     Dosage: UNK
     Route: 065
  4. HYDROCODONE BITARTRATE AND ACETAMINOPHEN [Suspect]
     Active Substance: ACETAMINOPHEN\HYDROCODONE BITARTRATE
     Indication: PRODUCT USED FOR UNKNOWN INDICATION
     Dosage: UNK
     Route: 048

REACTIONS (26)
  - Bone pain [Unknown]
  - Hyperaesthesia [Unknown]
  - Nausea [Unknown]
  - Constipation [Unknown]
  - Unevaluable event [Unknown]
  - Drug dependence [Unknown]
  - Sleep disorder [Unknown]
  - Emotional distress [Unknown]
  - Pain [Unknown]
  - Myalgia [Unknown]
  - Influenza like illness [Unknown]
  - Social avoidant behaviour [Unknown]
  - Overdose [Unknown]
  - Cold sweat [Unknown]
  - Drug withdrawal syndrome [Unknown]
  - Psychomotor skills impaired [Unknown]
  - Confusional state [Unknown]
  - Flushing [Unknown]
  - Anxiety [Unknown]
  - Respiratory rate decreased [Unknown]
  - Decreased appetite [Unknown]
  - Diarrhoea [Unknown]
  - Vomiting [Unknown]
  - Depression [Unknown]
  - Drug abuse [Unknown]
  - Somnolence [Unknown]
